FAERS Safety Report 9338229 (Version 1)
Quarter: 2013Q2

REPORT INFORMATION
  Report Type: Spontaneous
  Country: US (occurrence: None)
  Receive Date: 20130605
  Receipt Date: 20130605
  Transmission Date: 20140414
  Serious: Yes (Life-Threatening)
  Sender: FDA-Public Use
  Company Number: None

PATIENT
  Age: 66 Year
  Sex: Female
  Weight: 83.92 kg

DRUGS (2)
  1. MONTELUKAST [Suspect]
     Indication: MULTIPLE ALLERGIES
     Dates: start: 20130521
  2. MONTELUKAST [Suspect]
     Indication: ASTHMA
     Dates: start: 20130521

REACTIONS (4)
  - Oedema mouth [None]
  - Pharyngeal oedema [None]
  - Oropharyngeal pain [None]
  - Oral pain [None]
